FAERS Safety Report 4466294-1 (Version None)
Quarter: 2004Q4

REPORT INFORMATION
  Report Type: 
  Country: None (occurrence: None)
  Receive Date: 20041001
  Receipt Date: 20040927
  Transmission Date: 20050328
  Serious: No
  Sender: FDA-Public Use
  Company Number: 2004CG01745

PATIENT
  Age: 72 Year
  Sex: Male
  Weight: 78 kg

DRUGS (6)
  1. CRESTOR [Suspect]
     Indication: DYSLIPIDAEMIA
     Dosage: 10 MG QD PO
     Route: 048
     Dates: start: 20040101, end: 20040831
  2. AMLOR [Concomitant]
  3. TRIATEC [Concomitant]
  4. FLUDEX [Concomitant]
  5. INSULINE INNOLET [Concomitant]
  6. PLAVIX [Concomitant]

REACTIONS (4)
  - BLOOD CHOLESTEROL INCREASED [None]
  - BLOOD GLUCOSE INCREASED [None]
  - GLYCOSYLATED HAEMOGLOBIN INCREASED [None]
  - HYPERTRIGLYCERIDAEMIA [None]
